FAERS Safety Report 18474715 (Version 2)
Quarter: 2021Q1

REPORT INFORMATION
  Report Type: Spontaneous
  Country: US (occurrence: US)
  Receive Date: 20201106
  Receipt Date: 20210323
  Transmission Date: 20210419
  Serious: Yes (Other)
  Sender: FDA-Public Use
  Company Number: US-PURDUE-USA-2020-0174797

PATIENT
  Sex: Female

DRUGS (7)
  1. TRAMADOL CR TABLETS (RHODES 21?745) [Suspect]
     Active Substance: TRAMADOL
     Indication: FIBROMYALGIA
     Dosage: UNK
     Route: 048
     Dates: start: 2006
  2. HYDROCODONE BITARTRATE AND ACETAMINOPHEN [Suspect]
     Active Substance: ACETAMINOPHEN\HYDROCODONE BITARTRATE
     Indication: FIBROMYALGIA
     Dosage: UNK
     Route: 048
     Dates: start: 2006
  3. MORPHINE SULFATE EXTENDED?RELEASE TABLETS (RHODES 74?769, 74?862) [Suspect]
     Active Substance: MORPHINE SULFATE
     Indication: FIBROMYALGIA
     Dosage: UNK
     Route: 048
     Dates: start: 2006
  4. DILAUDID [Suspect]
     Active Substance: HYDROMORPHONE HYDROCHLORIDE
     Indication: FIBROMYALGIA
     Dosage: UNK
     Route: 048
     Dates: start: 2006
  5. PERCOCET                           /00446701/ [Suspect]
     Active Substance: ACETAMINOPHEN\OXYCODONE HYDROCHLORIDE\OXYCODONE TEREPHTHALATE
     Indication: FIBROMYALGIA
     Dosage: UNK
     Route: 048
     Dates: start: 2006
  6. VICODIN [Suspect]
     Active Substance: ACETAMINOPHEN\HYDROCODONE BITARTRATE
     Indication: FIBROMYALGIA
     Dosage: UNK
     Route: 048
     Dates: start: 2006
  7. OXYCODONE/ ACETAMINOPHEN TABLETS [Suspect]
     Active Substance: ACETAMINOPHEN\OXYCODONE HYDROCHLORIDE
     Indication: FIBROMYALGIA
     Dosage: UNK
     Route: 048
     Dates: start: 2006

REACTIONS (5)
  - Withdrawal syndrome [Unknown]
  - Road traffic accident [Unknown]
  - Post-traumatic stress disorder [Unknown]
  - Anxiety [Not Recovered/Not Resolved]
  - Drug dependence [Recovering/Resolving]
